FAERS Safety Report 9921181 (Version 1)
Quarter: 2014Q1

REPORT INFORMATION
  Report Type: Spontaneous
  Country: NL (occurrence: NL)
  Receive Date: 20140225
  Receipt Date: 20140225
  Transmission Date: 20141002
  Serious: Yes (Hospitalization)
  Sender: FDA-Public Use
  Company Number: NL-AMGEN-NLDSP2014012840

PATIENT
  Age: 53 Year
  Sex: Female

DRUGS (1)
  1. NEULASTA [Suspect]
     Indication: PRODUCT USED FOR UNKNOWN INDICATION
     Dosage: 6 MG, Q3WK
     Route: 058
     Dates: start: 20131109

REACTIONS (1)
  - Adverse event [Unknown]
